FAERS Safety Report 10891691 (Version 1)
Quarter: 2015Q1

REPORT INFORMATION
  Report Type: Spontaneous
  Country: US (occurrence: US)
  Receive Date: 20150306
  Receipt Date: 20150306
  Transmission Date: 20150721
  Serious: Yes (Death)
  Sender: FDA-Public Use
  Company Number: US-BANPHARM-20153653

PATIENT
  Age: 42 Year
  Sex: Female

DRUGS (10)
  1. CITALOPRAM [Suspect]
     Active Substance: CITALOPRAM HYDROBROMIDE
  2. ACETAMINOPHEN. [Suspect]
     Active Substance: ACETAMINOPHEN
  3. ISOPROPANOL [Suspect]
     Active Substance: ISOPROPANOLAMINE
  4. DOXYLAMINE [Suspect]
     Active Substance: DOXYLAMINE
  5. DIPHENHYDRAMINE UNKNOWN PRODUCT [Suspect]
     Active Substance: DIPHENHYDRAMINE
  6. FENTANYL. [Suspect]
     Active Substance: FENTANYL
  7. DOXEPIN [Suspect]
     Active Substance: DOXEPIN
  8. BUSPIRONE [Suspect]
     Active Substance: BUSPIRONE HYDROCHLORIDE
  9. QUETIAPINE [Suspect]
     Active Substance: QUETIAPINE
  10. DEXTROMETHORPHAN [Suspect]
     Active Substance: DEXTROMETHORPHAN

REACTIONS (2)
  - Exposure via ingestion [None]
  - Drug abuse [Fatal]
